FAERS Safety Report 9054348 (Version 5)
Quarter: 2013Q2

REPORT INFORMATION
  Report Type: Spontaneous
  Country: US (occurrence: US)
  Receive Date: 20130208
  Receipt Date: 20130508
  Transmission Date: 20140414
  Serious: Yes (Hospitalization, Other)
  Sender: FDA-Public Use
  Company Number: US-B.I. PHARMACEUTICALS,INC./RIDGEFIELD-2013-BI-03359BP

PATIENT
  Age: 80 Year
  Sex: Female
  Weight: 61.23 kg

DRUGS (20)
  1. PRADAXA [Suspect]
     Indication: ANTICOAGULANT THERAPY
     Dosage: 300 MG
     Route: 048
     Dates: start: 20110121, end: 20110216
  2. PRADAXA [Suspect]
     Indication: ATRIAL FIBRILLATION
  3. TRICOR [Concomitant]
     Dosage: 145 MG
     Route: 048
     Dates: start: 2004, end: 2011
  4. PROVENTIL HFA [Concomitant]
     Indication: COUGH
     Route: 055
     Dates: start: 2008
  5. PROVENTIL HFA [Concomitant]
     Indication: DYSPNOEA
  6. PROVENTIL HFA [Concomitant]
     Indication: WHEEZING
  7. SPIRIVA INHALER [Concomitant]
     Indication: CHRONIC OBSTRUCTIVE PULMONARY DISEASE
     Dosage: 18 MCG
     Route: 055
     Dates: start: 2008
  8. FOLTX [Concomitant]
     Route: 048
     Dates: start: 2011
  9. COREG [Concomitant]
     Indication: HYPERTENSION
     Dosage: 12.5 MG
     Route: 048
     Dates: start: 2008
  10. GLUCOPHAGE XR [Concomitant]
     Dosage: 2000 MG
     Dates: start: 2005
  11. ALBUTEROL SULFATE [Concomitant]
     Dates: start: 2009
  12. ASPIRIN [Concomitant]
     Dosage: 81 MG
  13. AVALIDE [Concomitant]
     Route: 048
  14. CENTRUM SILVER THERAPEUTIC MULTIPLE VITAMINS WITH MINERALS [Concomitant]
     Route: 048
  15. DUONEB [Concomitant]
  16. LANOXIN [Concomitant]
     Dosage: 250 MCG
     Route: 048
  17. NASACORT [Concomitant]
     Route: 045
  18. SPIRONOLACTONE [Concomitant]
     Dosage: 25 MG
  19. VITAMIN E [Concomitant]
     Dosage: 400 U
     Route: 048
  20. STOOL SOFTENER [Concomitant]

REACTIONS (4)
  - Gastrointestinal arteriovenous malformation [Unknown]
  - Lower gastrointestinal haemorrhage [Recovered/Resolved]
  - Anaemia [Unknown]
  - Coagulopathy [Unknown]
